FAERS Safety Report 19780278 (Version 1)
Quarter: 2021Q3

REPORT INFORMATION
  Report Type: Spontaneous
  Country: CA (occurrence: CA)
  Receive Date: 20210902
  Receipt Date: 20210902
  Transmission Date: 20211014
  Serious: Yes (Other)
  Sender: FDA-Public Use
  Company Number: CA-PFIZER INC-2020211107

PATIENT
  Age: 45 Year
  Sex: Female

DRUGS (2)
  1. METHOTREXATE SODIUM. [Suspect]
     Active Substance: METHOTREXATE SODIUM
     Dosage: UNK
     Route: 058
     Dates: start: 201906, end: 201911
  2. ENTOCORT [Concomitant]
     Active Substance: BUDESONIDE
     Dosage: UNK
     Dates: start: 201901

REACTIONS (6)
  - Product use issue [Unknown]
  - Infection [Unknown]
  - Off label use [Unknown]
  - Drug tolerance decreased [Unknown]
  - Ileal stenosis [Unknown]
  - Rash [Unknown]

NARRATIVE: CASE EVENT DATE: 201906
